FAERS Safety Report 9270518 (Version 1)
Quarter: 2013Q2

REPORT INFORMATION
  Report Type: Spontaneous
  Country: US (occurrence: US)
  Receive Date: 20130503
  Receipt Date: 20130503
  Transmission Date: 20140414
  Serious: No
  Sender: FDA-Public Use
  Company Number: US-B.I. PHARMACEUTICALS,INC./RIDGEFIELD-2013-BI-11597BP

PATIENT
  Age: 60 Year
  Sex: Female
  Weight: 62 kg

DRUGS (30)
  1. SPIRIVA [Suspect]
     Indication: CHRONIC OBSTRUCTIVE PULMONARY DISEASE
     Dosage: 18 MCG
     Route: 055
     Dates: start: 2008
  2. FENTANYL [Concomitant]
     Indication: PAIN
     Route: 061
  3. OXYCODONE [Concomitant]
     Indication: PAIN
     Dosage: 90 MG
     Route: 048
  4. VILAZODONE [Concomitant]
     Dosage: 10 MG
     Route: 048
  5. FLUCONAZOLE [Concomitant]
     Dosage: 150 MG
     Route: 048
  6. ADVAIR [Concomitant]
     Indication: CHRONIC OBSTRUCTIVE PULMONARY DISEASE
     Route: 055
  7. METHOCARBAMOL [Concomitant]
     Dosage: 2250 MG
     Route: 048
  8. ROPINIROLE [Concomitant]
     Dosage: 2 MG
     Route: 048
  9. FUROSEMIDE [Concomitant]
     Indication: FLUID RETENTION
     Dosage: 40 MG
     Route: 048
  10. ATENOLOL [Concomitant]
     Dosage: 25 MG
     Route: 048
  11. XANAX [Concomitant]
     Dosage: 6 MG
     Route: 048
  12. FENOFIBRIC ACID [Concomitant]
     Indication: BLOOD CHOLESTEROL INCREASED
     Dosage: 135 MG
     Route: 048
  13. POTASSIUM CHLORIDE [Concomitant]
     Dosage: 40 MEQ
     Route: 048
  14. CYANOCOBALAMINE [Concomitant]
     Route: 030
  15. NEXIUM [Concomitant]
     Dosage: 40 MG
     Route: 048
  16. ZOFRAN [Concomitant]
     Route: 048
  17. TRAZADONE [Concomitant]
     Dosage: 150 MG
     Route: 048
  18. LIPITOR [Concomitant]
     Indication: BLOOD CHOLESTEROL INCREASED
     Dosage: 20 MG
     Route: 048
  19. FOSAMAX [Concomitant]
     Dosage: 490 MG
     Route: 048
  20. NEURONTIN [Concomitant]
     Dosage: 900 MG
     Route: 048
  21. ALBUTEROL SULFATE [Concomitant]
     Indication: CHRONIC OBSTRUCTIVE PULMONARY DISEASE
     Route: 055
  22. METFORMIN [Concomitant]
     Indication: DIABETES MELLITUS
     Dosage: 2000 MG
     Route: 048
  23. ATARAX [Concomitant]
     Dosage: 75 MG
     Route: 048
  24. QNASL NASAL SPRAY [Concomitant]
     Route: 045
  25. LOMOTIL [Concomitant]
     Dosage: 10 MG
     Route: 048
  26. IMITREX [Concomitant]
     Indication: MIGRAINE
     Route: 048
  27. VITAMIN D 3 [Concomitant]
     Route: 048
  28. ASCORBIC ACID [Concomitant]
     Route: 048
  29. MULTIVITAMIN [Concomitant]
     Route: 048
  30. ASPIRIN [Concomitant]
     Dosage: 81 MG
     Route: 048

REACTIONS (3)
  - Dizziness [Not Recovered/Not Resolved]
  - Chest pain [Not Recovered/Not Resolved]
  - Asthenia [Not Recovered/Not Resolved]
